FAERS Safety Report 5651938-9 (Version None)
Quarter: 2008Q1

REPORT INFORMATION
  Report Type: 
  Country: None (occurrence: None)
  Receive Date: 20080304
  Receipt Date: 20080226
  Transmission Date: 20080703
  Serious: Yes (Hospitalization)
  Sender: FDA-Public Use
  Company Number: SP01793

PATIENT
  Age: 56 Year
  Sex: Male
  Weight: 76.2043 kg

DRUGS (12)
  1. COLAZAL [Suspect]
     Indication: COLITIS ULCERATIVE
     Dosage: 6.75 GM (2.25 GM, 3 IN 1 D) ORAL; 6.75 GM (2.25, 3 IN 1 D) ORAL; 65649-101-02 (1.5 GM, 2 IN 1 D) ORA
     Route: 048
     Dates: start: 20030501, end: 20030801
  2. COLAZAL [Suspect]
     Indication: COLITIS ULCERATIVE
     Dosage: 6.75 GM (2.25 GM, 3 IN 1 D) ORAL; 6.75 GM (2.25, 3 IN 1 D) ORAL; 65649-101-02 (1.5 GM, 2 IN 1 D) ORA
     Route: 048
     Dates: start: 20071101, end: 20080203
  3. COLAZAL [Suspect]
     Indication: COLITIS ULCERATIVE
     Dosage: 6.75 GM (2.25 GM, 3 IN 1 D) ORAL; 6.75 GM (2.25, 3 IN 1 D) ORAL; 65649-101-02 (1.5 GM, 2 IN 1 D) ORA
     Route: 048
     Dates: start: 20080203
  4. MESALAMINE [Suspect]
     Indication: COLITIS ULCERATIVE
     Dosage: 2400 MG (800 MG, 3 IN 1 D) ; 1600 MG (800 MG, 2 IN 1 D)
     Dates: start: 19990101, end: 20030601
  5. MESALAMINE [Suspect]
     Indication: COLITIS ULCERATIVE
     Dosage: 2400 MG (800 MG, 3 IN 1 D) ; 1600 MG (800 MG, 2 IN 1 D)
     Dates: start: 20030101, end: 20071101
  6. FENOFIBRATE [Concomitant]
  7. OMEGA-3-ACID ETHYL ESTERE [Concomitant]
  8. RAMIPRIL [Concomitant]
  9. METOPROLOL SUCCINATE [Concomitant]
  10. ROSUVASTATIN [Concomitant]
  11. ASPIRIN [Concomitant]
  12. MULTI-VITAMIN [Concomitant]

REACTIONS (5)
  - MICTURITION URGENCY [None]
  - MYOCARDIAL INFARCTION [None]
  - POLLAKIURIA [None]
  - PROSTATOMEGALY [None]
  - RESIDUAL URINE [None]
